FAERS Safety Report 6816814-4 (Version None)
Quarter: 2010Q3

REPORT INFORMATION
  Report Type: 
  Country: None (occurrence: None)
  Receive Date: 20100706
  Receipt Date: 20100624
  Transmission Date: 20110219
  Serious: Yes (Hospitalization)
  Sender: FDA-Public Use
  Company Number: IE-MEDIMMUNE-MEDI-0009787

PATIENT
  Sex: Male
  Weight: 8.14 kg

DRUGS (6)
  1. SYNAGIS [Suspect]
     Route: 030
     Dates: start: 20091014, end: 20091014
  2. BECLOMETASONE DIPROPIONATE [Concomitant]
     Dates: start: 20090701
  3. OMEPRAZOLE [Concomitant]
     Route: 048
  4. IPRATROPIUM BROMIDE [Concomitant]
  5. GAVISCON [Concomitant]
     Route: 048
  6. AUGMENTIN '125' [Concomitant]
     Route: 042

REACTIONS (2)
  - LOWER RESPIRATORY TRACT INFECTION [None]
  - WHEEZING [None]
